FAERS Safety Report 24659339 (Version 1)
Quarter: 2024Q4

REPORT INFORMATION
  Report Type: Spontaneous
  Country: US (occurrence: None)
  Receive Date: 20241123
  Receipt Date: 20241123
  Transmission Date: 20250115
  Serious: No
  Sender: Public
  Company Number: None

PATIENT
  Age: 64 Year
  Sex: Female
  Weight: 157.5 kg

DRUGS (11)
  1. MONTELUKAST SODIUM [Suspect]
     Active Substance: MONTELUKAST\MONTELUKAST SODIUM
     Indication: Asthma
     Dosage: OTHER QUANTITY : 1 TABLET(S);?FREQUENCY : AT BEDTIME;?
     Route: 048
     Dates: start: 20240928, end: 20240929
  2. LOSARTAN [Concomitant]
     Active Substance: LOSARTAN
  3. lasix [Concomitant]
  4. albuterol [Concomitant]
  5. NORETHINDRONE [Concomitant]
     Active Substance: NORETHINDRONE
  6. OXYGEN [Concomitant]
     Active Substance: OXYGEN
  7. METFORMIN [Concomitant]
  8. BREO ELLIPTA [Concomitant]
     Active Substance: FLUTICASONE FUROATE\VILANTEROL TRIFENATATE
  9. COLLAGEN [Concomitant]
  10. multivitamin [Concomitant]
  11. PROBIOTICS NOS [Concomitant]
     Active Substance: PROBIOTICS NOS

REACTIONS (1)
  - Paranoia [None]
